FAERS Safety Report 19272544 (Version 2)
Quarter: 2021Q3

REPORT INFORMATION
  Report Type: Report from Study
  Country: AU (occurrence: AU)
  Receive Date: 20210518
  Receipt Date: 20210719
  Transmission Date: 20211014
  Serious: Yes (Other)
  Sender: FDA-Public Use
  Company Number: AU-VERTEX PHARMACEUTICALS-2021-007465

PATIENT
  Age: 36 Year
  Sex: Male
  Weight: 83 kg

DRUGS (12)
  1. VX?445/VX?661/VX?770 [Suspect]
     Active Substance: ELEXACAFTOR\IVACAFTOR\TEZACAFTOR
     Indication: CYSTIC FIBROSIS
     Dosage: 2 TABS (100MG VX445/ 50 MG TEZ/ 75 MG IVA) QD; 1 TAB (150 MG IVA) QD
     Route: 048
     Dates: start: 20210226, end: 20210507
  2. VITABDECK [Concomitant]
     Indication: MALABSORPTION
     Dosage: 2 DOSAGE FORM, QD
     Route: 048
     Dates: start: 2015
  3. LATANOPROST. [Concomitant]
     Active Substance: LATANOPROST
     Indication: GLAUCOMA
     Dosage: 1 DROP/EYE QD
     Route: 047
     Dates: start: 20200128
  4. NUROFEN [IBUPROFEN] [Concomitant]
     Active Substance: IBUPROFEN
     Indication: HEADACHE
     Dosage: 400 MG, PRN
     Route: 048
     Dates: start: 2000
  5. MELATONIN [Concomitant]
     Active Substance: MELATONIN
     Indication: POOR QUALITY SLEEP
     Dosage: 2 MG, QD
     Route: 060
     Dates: start: 20210301, end: 20210522
  6. SULFORAPHANE. [Concomitant]
     Active Substance: SULFORAPHANE
     Indication: ROUTINE HEALTH MAINTENANCE
     Dosage: 250 MG, QD
     Route: 048
     Dates: start: 20210312
  7. URSODIOL. [Concomitant]
     Active Substance: URSODIOL
     Indication: LIVER FUNCTION TEST ABNORMAL
     Dosage: 500 MG, BID
     Route: 048
     Dates: start: 20200621
  8. ATROVENT [Concomitant]
     Active Substance: IPRATROPIUM BROMIDE
     Indication: CHEST DISCOMFORT
     Dosage: 2 PUFFS, PRN
     Dates: start: 2018
  9. CREON [Concomitant]
     Active Substance: PANCRELIPASE AMYLASE\PANCRELIPASE LIPASE\PANCRELIPASE PROTEASE
     Indication: PANCREATIC FAILURE
     Dosage: 25000 UNITS, PRN
     Route: 048
     Dates: start: 1984
  10. MAGNESIUM [Concomitant]
     Active Substance: MAGNESIUM
     Indication: MUSCLE SPASMS
     Dosage: UNK
     Dates: start: 20210417
  11. HYPERTONIC SALINE SOLUTION [Concomitant]
     Active Substance: SODIUM CHLORIDE
     Indication: CYSTIC FIBROSIS LUNG
     Dosage: 20 MILLILITER, QD
     Route: 055
     Dates: start: 200506
  12. SALBUTAMOL [Concomitant]
     Active Substance: ALBUTEROL
     Indication: CYSTIC FIBROSIS LUNG
     Dosage: 6 PUFFS, BID
     Dates: start: 2005

REACTIONS (4)
  - Alanine aminotransferase increased [Recovered/Resolved]
  - Aspartate aminotransferase increased [Recovered/Resolved]
  - Gamma-glutamyltransferase increased [Recovered/Resolved]
  - Blood bilirubin increased [Recovered/Resolved]

NARRATIVE: CASE EVENT DATE: 20210507
